FAERS Safety Report 19423773 (Version 5)
Quarter: 2022Q1

REPORT INFORMATION
  Report Type: Spontaneous
  Country: US (occurrence: US)
  Receive Date: 20210616
  Receipt Date: 20220111
  Transmission Date: 20220423
  Serious: Yes (Other)
  Sender: FDA-Public Use
  Company Number: US-PFIZER INC-2021467715

PATIENT
  Age: 63 Year
  Sex: Female

DRUGS (3)
  1. IBRANCE [Suspect]
     Active Substance: PALBOCICLIB
     Indication: Breast cancer female
     Dosage: 125 MG
  2. IBRANCE [Suspect]
     Active Substance: PALBOCICLIB
     Dosage: 125 MG, CYCLIC (DAILY FOR 21 DAYS ON, 7 DAYS OFF ON A 28 DAY CYCLE)
     Dates: start: 20210409, end: 2021
  3. IBRANCE [Suspect]
     Active Substance: PALBOCICLIB
     Dosage: 125 MG
     Dates: start: 20210531

REACTIONS (7)
  - Pneumonia [Unknown]
  - Pruritus [Unknown]
  - Skin lesion [Unknown]
  - Urinary tract infection [Unknown]
  - Nausea [Unknown]
  - Pyrexia [Unknown]
  - Surgery [Unknown]

NARRATIVE: CASE EVENT DATE: 20210101
